FAERS Safety Report 7505729-4 (Version None)
Quarter: 2011Q2

REPORT INFORMATION
  Report Type: 
  Country: None (occurrence: None)
  Receive Date: 20110519
  Receipt Date: 20110509
  Transmission Date: 20111010
  Serious: Yes (Other)
  Sender: FDA-Public Use
  Company Number: 2011SP021655

PATIENT
  Age: 80 Year
  Sex: Female

DRUGS (1)
  1. CLARINEX D 24 HOUR [Suspect]
     Indication: PRODUCT USED FOR UNKNOWN INDICATION
     Dosage: 10 MG;Q4H;PO
     Route: 048
     Dates: start: 20110509

REACTIONS (1)
  - BLOOD PRESSURE INCREASED [None]
